FAERS Safety Report 7094294-4 (Version None)
Quarter: 2010Q4

REPORT INFORMATION
  Report Type: 
  Country: None (occurrence: None)
  Receive Date: 20101110
  Receipt Date: 20101026
  Transmission Date: 20110411
  Serious: Yes (Hospitalization)
  Sender: FDA-Public Use
  Company Number: JP-BAYER-201015112BYL

PATIENT
  Age: 83 Year
  Sex: Male

DRUGS (2)
  1. ASPIRIN [Suspect]
     Indication: LACUNAR INFARCTION
     Route: 048
     Dates: start: 20090101
  2. MELOXICAM [Suspect]
     Indication: BACK PAIN
     Route: 048
     Dates: start: 20090101

REACTIONS (2)
  - DUODENAL FISTULA [None]
  - DUODENAL ULCER [None]
